FAERS Safety Report 4265909-0 (Version None)
Quarter: 2004Q1

REPORT INFORMATION
  Report Type: 
  Country: None (occurrence: None)
  Receive Date: 20040107
  Receipt Date: 20040107
  Transmission Date: 20041129
  Serious: No
  Sender: FDA-Public Use
  Company Number: None

PATIENT
  Sex: 0

DRUGS (2)
  1. HEPARIN [Suspect]
     Dosage: INTRAVENOUS
     Route: 042
  2. METRONIDAZOLE [Suspect]
     Dosage: INTRAVENOUS
     Route: 042

REACTIONS (1)
  - MEDICATION ERROR [None]
